FAERS Safety Report 15114177 (Version 1)
Quarter: 2018Q2

REPORT INFORMATION
  Report Type: Spontaneous
  Country: US (occurrence: US)
  Receive Date: 20180612
  Receipt Date: 20180612
  Transmission Date: 20180711
  Serious: No
  Sender: FDA-Public Use
  Company Number: None

PATIENT
  Age: 70 Year
  Sex: Female
  Weight: 46.27 kg

DRUGS (1)
  1. VALSARTAN 160MG TABS [Suspect]
     Active Substance: VALSARTAN
     Indication: PRODUCT USED FOR UNKNOWN INDICATION
     Dosage: 1 A DAY IN MORNING, MOUTH
     Route: 048
     Dates: start: 20180112, end: 20180330

REACTIONS (2)
  - Heart rate irregular [None]
  - Anxiety [None]

NARRATIVE: CASE EVENT DATE: 20180103
